FAERS Safety Report 4705002-3 (Version None)
Quarter: 2005Q3

REPORT INFORMATION
  Report Type: 
  Country: None (occurrence: None)
  Receive Date: 20050701
  Receipt Date: 20050623
  Transmission Date: 20060218
  Serious: Yes (Hospitalization)
  Sender: FDA-Public Use
  Company Number: JP-JNJFOC-20050606809

PATIENT
  Sex: Female
  Weight: 60 kg

DRUGS (8)
  1. REMICADE [Suspect]
     Route: 065
  2. REMICADE [Suspect]
     Route: 065
  3. REMICADE [Suspect]
     Route: 065
  4. REMICADE [Suspect]
     Route: 065
  5. REMICADE [Suspect]
     Route: 065
  6. REMICADE [Suspect]
     Indication: RHEUMATOID ARTHRITIS
     Route: 065
  7. RHEUMATREX [Concomitant]
     Route: 049
  8. RHEUMATREX [Concomitant]
     Indication: RHEUMATOID ARTHRITIS
     Route: 049

REACTIONS (1)
  - ANTIPHOSPHOLIPID SYNDROME [None]
